FAERS Safety Report 4433426-0 (Version None)
Quarter: 2004Q3

REPORT INFORMATION
  Report Type: 
  Country: None (occurrence: None)
  Receive Date: 20040826
  Receipt Date: 20040401
  Transmission Date: 20050211
  Serious: Yes (Other)
  Sender: FDA-Public Use
  Company Number: PHBS2004JP04512

PATIENT
  Age: 44 Year
  Sex: Male
  Weight: 64 kg

DRUGS (1)
  1. DIOVAN [Suspect]
     Indication: HYPERKINETIC HEART SYNDROME
     Dosage: 80 MG, QD
     Route: 048
     Dates: start: 20040201, end: 20040228

REACTIONS (3)
  - ERYTHEMA MULTIFORME [None]
  - RASH PAPULAR [None]
  - SOMNOLENCE [None]
